FAERS Safety Report 4399262-9 (Version None)
Quarter: 2004Q3

REPORT INFORMATION
  Report Type: 
  Country: None (occurrence: None)
  Receive Date: 20040712
  Receipt Date: 19980311
  Transmission Date: 20050211
  Serious: Yes (Hospitalization)
  Sender: FDA-Public Use
  Company Number: US_980300342

PATIENT

DRUGS (1)
  1. GEMCITABINE HYDROCHLORIDE-IV (GEMCITABINE) [Suspect]

REACTIONS (4)
  - BACTERIAL INFECTION [None]
  - CULTURE URINE POSITIVE [None]
  - DEHYDRATION [None]
  - VOMITING [None]
